FAERS Safety Report 5922096-8 (Version None)
Quarter: 2008Q3

REPORT INFORMATION
  Report Type: 
  Country: None (occurrence: None)
  Receive Date: 20080909
  Receipt Date: 20080711
  Transmission Date: 20090109
  Serious: Yes (Other)
  Sender: FDA-Public Use
  Company Number: 163-20785-08061169

PATIENT
  Age: 84 Year
  Sex: Female

DRUGS (13)
  1. THALOMID [Suspect]
     Indication: MULTIPLE MYELOMA
     Dosage: 50 MG, 1 IN 1 D, ORAL
     Route: 048
     Dates: start: 20080614, end: 20080615
  2. PROTONIX [Concomitant]
  3. TOPROL-XL [Concomitant]
  4. LISINOPRIL [Concomitant]
  5. CENTRUM SILVER (CENTRUM SILVER) [Concomitant]
  6. IRON (IRON) [Concomitant]
  7. TYLENOL [Concomitant]
  8. ASPIRIN [Concomitant]
  9. GLUCOSAMINE/CHONDROITIN (GLUCOSAMINE W/CHONDROITIN SULFATE) [Concomitant]
  10. CALCIUM (CALCIUM) [Concomitant]
  11. MAGNESIUM (MAGNESIUM) [Concomitant]
  12. ZINC (ZINC) [Concomitant]
  13. MULTIVITAMIN [Concomitant]

REACTIONS (8)
  - ANOREXIA [None]
  - DIZZINESS [None]
  - DRY MOUTH [None]
  - HALLUCINATION [None]
  - NAUSEA [None]
  - RETCHING [None]
  - SOMNOLENCE [None]
  - VERTIGO [None]
